FAERS Safety Report 8922929 (Version 1)
Quarter: 2012Q4

REPORT INFORMATION
  Report Type: Spontaneous
  Country: US (occurrence: None)
  Receive Date: 20121115
  Receipt Date: 20121115
  Transmission Date: 20130627
  Serious: Yes (Other)
  Sender: FDA-Public Use
  Company Number: FK201203309

PATIENT
  Sex: Male

DRUGS (1)
  1. FLUOROURACIL [Suspect]
     Indication: ACCIDENTAL EXPOSURE TO PRODUCT
     Route: 003

REACTIONS (7)
  - Accidental exposure to product [None]
  - Pyrexia [None]
  - Hyperhidrosis [None]
  - Throat tightness [None]
  - Oral discomfort [None]
  - Burning sensation [None]
  - Tremor [None]
